FAERS Safety Report 5367122-2 (Version None)
Quarter: 2007Q2

REPORT INFORMATION
  Report Type: 
  Country: None (occurrence: None)
  Receive Date: 20070622
  Receipt Date: 20060720
  Transmission Date: 20071010
  Serious: No
  Sender: FDA-Public Use
  Company Number: US-BRISTOL-MYERS SQUIBB COMPANY-13448410

PATIENT
  Age: 63 Year
  Sex: Female
  Weight: 68 kg

DRUGS (5)
  1. SINEMET [Suspect]
     Indication: RESTLESS LEGS SYNDROME
     Route: 048
     Dates: end: 20060719
  2. CLONAZEPAM [Concomitant]
  3. PROZAC [Concomitant]
  4. CITRACAL [Concomitant]
  5. IMITREX [Concomitant]

REACTIONS (2)
  - DYSKINESIA [None]
  - INSOMNIA [None]
